FAERS Safety Report 9726315 (Version 2)
Quarter: 2014Q2

REPORT INFORMATION
  Report Type: Spontaneous
  Country: US (occurrence: US)
  Receive Date: 20131203
  Receipt Date: 20140506
  Transmission Date: 20141212
  Serious: Yes (Other)
  Sender: FDA-Public Use
  Company Number: US-BAYER-2013-144977

PATIENT
  Age: 45 Year
  Sex: Female
  Weight: 83.9 kg

DRUGS (2)
  1. MIRENA [Suspect]
     Dosage: 20 MCG/24HR, CONT
     Route: 015
     Dates: end: 20131113
  2. ESSURE [Suspect]
     Indication: STERILISATION
     Dosage: UNK
     Dates: start: 20131213

REACTIONS (6)
  - Device breakage [Not Recovered/Not Resolved]
  - Complication of device removal [Not Recovered/Not Resolved]
  - Uterine leiomyoma [None]
  - Menorrhagia [None]
  - Off label use [Unknown]
  - Breast mass [None]
